FAERS Safety Report 6207541-5 (Version None)
Quarter: 2009Q2

REPORT INFORMATION
  Report Type: 
  Country: None (occurrence: None)
  Receive Date: 20090528
  Receipt Date: 20090519
  Transmission Date: 20091009
  Serious: Yes (Other)
  Sender: FDA-Public Use
  Company Number: PHEH2009US05018

PATIENT
  Sex: Female
  Weight: 85.306 kg

DRUGS (2)
  1. ZOMETA [Suspect]
     Indication: METASTASES TO BONE
     Dosage: 4 MG, QMO
     Dates: start: 20070101
  2. CAPECITABINE [Suspect]
     Indication: BREAST CANCER
     Dosage: 2500 MG, BID
     Route: 048
     Dates: start: 20080421, end: 20090324

REACTIONS (6)
  - CARBOHYDRATE ANTIGEN 15-3 INCREASED [None]
  - MALIGNANT NEOPLASM PROGRESSION [None]
  - MOBILITY DECREASED [None]
  - PAIN OF SKIN [None]
  - PALMAR-PLANTAR ERYTHRODYSAESTHESIA SYNDROME [None]
  - SKIN CHAPPED [None]
